FAERS Safety Report 11748458 (Version 1)
Quarter: 2015Q4

REPORT INFORMATION
  Report Type: Report from Study
  Country: US (occurrence: US)
  Receive Date: 20151117
  Receipt Date: 20151117
  Transmission Date: 20160304
  Serious: Yes (Hospitalization)
  Sender: FDA-Public Use
  Company Number: US-ALEXION PHARMACEUTICALS INC-A201504488

PATIENT
  Age: 64 Year
  Sex: Female

DRUGS (2)
  1. SOLIRIS [Suspect]
     Active Substance: ECULIZUMAB
     Indication: HAEMOLYTIC URAEMIC SYNDROME
     Dosage: 900 MG, UNK
     Route: 042
     Dates: start: 20151102
  2. CEFTRIAXONE. [Concomitant]
     Active Substance: CEFTRIAXONE
     Indication: PRODUCT USED FOR UNKNOWN INDICATION
     Dosage: 250 MG, SINGLE
     Route: 030
     Dates: start: 20151102, end: 20151102

REACTIONS (2)
  - Unevaluable event [Unknown]
  - Platelet count decreased [Unknown]

NARRATIVE: CASE EVENT DATE: 201511
